FAERS Safety Report 17717222 (Version 1)
Quarter: 2020Q2

REPORT INFORMATION
  Report Type: Report from Study
  Country: US (occurrence: US)
  Receive Date: 20200428
  Receipt Date: 20200428
  Transmission Date: 20200714
  Serious: Yes (Hospitalization)
  Sender: FDA-Public Use
  Company Number: US-TEVA-2020-US-1228058

PATIENT
  Age: 155 Month

DRUGS (8)
  1. VINCRISTINE [Concomitant]
     Active Substance: VINCRISTINE
     Indication: BRAIN SARCOMA
     Dosage: ON DAY 1, DAY 8 AND 15 OF EACH CYCLE
     Route: 065
  2. ETOPOSIDE. [Concomitant]
     Active Substance: ETOPOSIDE
     Indication: BRAIN SARCOMA
     Dosage: ON DAYS A, B, AND C,
     Route: 065
  3. METHOTREXATE. [Suspect]
     Active Substance: METHOTREXATE
     Indication: BRAIN SARCOMA
     Dosage: HIGH-DOSE
     Route: 050
  4. CISPLATIN. [Concomitant]
     Active Substance: CISPLATIN
     Indication: BRAIN SARCOMA
     Dosage: ON DAY C
     Route: 065
  5. LEUCOVORIN. [Concomitant]
     Active Substance: LEUCOVORIN
     Indication: BRAIN SARCOMA
     Dosage: STARTING AT 24 HOURS AFTER METHOTREXATE INFUSION
     Route: 065
  6. FILGRASTIM [Concomitant]
     Active Substance: FILGRASTIM
     Dosage: STARTED THE DAY AFTER COMPLETION OF DAY C CHEMOTHERAPY.
     Route: 065
  7. CYCLOPHOSPHAMIDE. [Concomitant]
     Active Substance: CYCLOPHOSPHAMIDE
     Indication: BRAIN SARCOMA
     Dosage: ON DAYS A AND B
     Route: 065
  8. MESNA. [Concomitant]
     Active Substance: MESNA
     Dosage: GIVEN AT 100% OF THE DAILY CYCLOPHOSPHAMIDE DOSE ON DAYS A AND B
     Route: 065

REACTIONS (2)
  - Toxicity to various agents [Unknown]
  - Central nervous system necrosis [Unknown]
